FAERS Safety Report 8011564-3 (Version None)
Quarter: 2011Q4

REPORT INFORMATION
  Report Type: 
  Country: None (occurrence: None)
  Receive Date: 20111228
  Receipt Date: 20111221
  Transmission Date: 20120403
  Serious: No
  Sender: FDA-Public Use
  Company Number: US-PFIZER INC-2011267093

PATIENT
  Sex: Male

DRUGS (1)
  1. TRIAZOLAM [Suspect]
     Indication: SLEEP DISORDER
     Dosage: 0.50 MG, DAILY
     Route: 048

REACTIONS (1)
  - DRUG INEFFECTIVE [None]
